FAERS Safety Report 5570187-6 (Version None)
Quarter: 2007Q4

REPORT INFORMATION
  Report Type: 
  Country: None (occurrence: None)
  Receive Date: 20071220
  Receipt Date: 20071217
  Transmission Date: 20080405
  Serious: Yes (Life-Threatening, Hospitalization)
  Sender: FDA-Public Use
  Company Number: US-GILEAD-2007-0014663

PATIENT
  Sex: Male

DRUGS (13)
  1. TRUVADA [Suspect]
     Indication: HIV INFECTION
     Route: 048
  2. KALETRA [Suspect]
     Indication: HIV INFECTION
     Route: 048
  3. PROZAC [Concomitant]
     Route: 048
  4. ATIVAN [Concomitant]
     Route: 048
  5. QUETIAPINE [Concomitant]
     Route: 048
  6. LANSOPRAZOLE [Concomitant]
     Route: 048
  7. TRAZODONE HCL [Concomitant]
     Route: 048
  8. KEPPRA [Concomitant]
     Route: 048
  9. CLONAZEPAM [Concomitant]
     Route: 048
  10. CLONAZEPAM [Concomitant]
     Route: 048
  11. DEPAKOTE [Concomitant]
     Route: 048
  12. ATIVAN [Concomitant]
     Route: 048
  13. LORAZEPAM [Concomitant]
     Route: 048

REACTIONS (1)
  - RESPIRATORY FAILURE [None]
